FAERS Safety Report 14303468 (Version 1)
Quarter: 2017Q4

REPORT INFORMATION
  Report Type: Spontaneous
  Country: PT (occurrence: PT)
  Receive Date: 20171219
  Receipt Date: 20171219
  Transmission Date: 20180321
  Serious: Yes (Other)
  Sender: FDA-Public Use
  Company Number: PT-OTSUKA-2016_001190

PATIENT
  Age: 1 Day
  Sex: Male

DRUGS (1)
  1. ABILIFY [Suspect]
     Active Substance: ARIPIPRAZOLE
     Indication: PRODUCT USED FOR UNKNOWN INDICATION
     Dosage: 15 MG, UNK
     Route: 064
     Dates: start: 200508, end: 20051212

REACTIONS (2)
  - Foetal exposure during pregnancy [Recovered/Resolved]
  - Foetal hypokinesia [Unknown]

NARRATIVE: CASE EVENT DATE: 200509
